FAERS Safety Report 11045465 (Version 3)
Quarter: 2015Q2

REPORT INFORMATION
  Report Type: Spontaneous
  Country: RU (occurrence: RU)
  Receive Date: 20150417
  Receipt Date: 20150622
  Transmission Date: 20150821
  Serious: Yes (Life-Threatening, Other)
  Sender: FDA-Public Use
  Company Number: RU-BAYER-2015-117778

PATIENT
  Age: 84 Year
  Sex: Female
  Weight: 80 kg

DRUGS (12)
  1. VALS [Concomitant]
     Dosage: UNK
  2. PRESTARIUM [Concomitant]
     Active Substance: PERINDOPRIL
     Dosage: UNK
  3. ACETYLCYSTEINE. [Interacting]
     Active Substance: ACETYLCYSTEINE
     Indication: PNEUMONIA
     Dosage: 200 MG, TID
  4. TRIMETAZIDINE [Concomitant]
     Active Substance: TRIMETAZIDINE
     Dosage: UNK
  5. AVELOX [Interacting]
     Active Substance: MOXIFLOXACIN HYDROCHLORIDE
     Indication: PNEUMONIA
     Dosage: 400 MG, QD
     Dates: start: 20150106, end: 20150116
  6. BERODUAL [Interacting]
     Active Substance: FENOTEROL HYDROBROMIDE\IPRATROPIUM BROMIDE
     Dosage: UNK
  7. VEROSPIRON [Concomitant]
     Active Substance: SPIRONOLACTONE
     Dosage: UNK
  8. DIABETON [GLICLAZIDE] [Concomitant]
     Dosage: 30 MG, UNK
     Dates: end: 20150201
  9. XARELTO [Suspect]
     Active Substance: RIVAROXABAN
     Indication: CEREBROVASCULAR ACCIDENT PROPHYLAXIS
  10. DIUVER [Concomitant]
     Active Substance: TORSEMIDE
     Dosage: UNK
  11. XARELTO [Suspect]
     Active Substance: RIVAROXABAN
     Indication: ATRIAL FIBRILLATION
     Dosage: 15 MG, QD
     Dates: start: 20150106, end: 20150201
  12. AUGMENTIN [Concomitant]
     Active Substance: AMOXICILLIN\CLAVULANATE POTASSIUM
     Dosage: UNK
     Dates: start: 20150119, end: 20150126

REACTIONS (5)
  - Dermatitis bullous [Recovering/Resolving]
  - Upper airway obstruction [Recovering/Resolving]
  - Apnoea [Recovering/Resolving]
  - Skin exfoliation [None]
  - Dermatitis bullous [Recovered/Resolved]

NARRATIVE: CASE EVENT DATE: 20150201
